FAERS Safety Report 11073909 (Version 3)
Quarter: 2015Q2

REPORT INFORMATION
  Report Type: Spontaneous
  Country: JP (occurrence: JP)
  Receive Date: 20150429
  Receipt Date: 20150531
  Transmission Date: 20150821
  Serious: Yes (Other)
  Sender: FDA-Public Use
  Company Number: JP-AMGEN-JPNSP2015040458

PATIENT
  Sex: Female

DRUGS (2)
  1. METOLATE [Suspect]
     Active Substance: METHOTREXATE
     Indication: RHEUMATOID ARTHRITIS
     Dosage: UNK
     Route: 048
  2. ENBREL [Suspect]
     Active Substance: ETANERCEPT
     Indication: RHEUMATOID ARTHRITIS
     Dosage: 50 MG, WEEKLY
     Route: 058
     Dates: start: 20150417

REACTIONS (1)
  - Haemorrhage subcutaneous [Recovered/Resolved]

NARRATIVE: CASE EVENT DATE: 20150418
